FAERS Safety Report 8847918 (Version 1)
Quarter: 2012Q4

REPORT INFORMATION
  Report Type: 
  Country: GB (occurrence: GB)
  Receive Date: 20121018
  Receipt Date: 20121018
  Transmission Date: 20130627
  Serious: Yes (Hospitalization, Other)
  Sender: FDA-Public Use
  Company Number: GB-WATSON-2012-17403

PATIENT
  Age: 89 Year
  Sex: Male
  Weight: 80 kg

DRUGS (1)
  1. OMEPRAZOLE (UNKNOWN) [Suspect]
     Indication: ABDOMINAL PAIN UPPER
     Dosage: 40 mg, daily
     Route: 048
     Dates: start: 20120830, end: 20120918

REACTIONS (10)
  - Tubulointerstitial nephritis [Recovering/Resolving]
  - Renal impairment [Unknown]
  - Lethargy [Unknown]
  - Renal failure acute [Unknown]
  - Decreased appetite [Unknown]
  - Chills [Unknown]
  - Diarrhoea [Unknown]
  - Faecal incontinence [Unknown]
  - Urine output decreased [Unknown]
  - Abdominal pain upper [Unknown]
